FAERS Safety Report 18584943 (Version 1)
Quarter: 2020Q4

REPORT INFORMATION
  Report Type: Spontaneous
  Country: US (occurrence: US)
  Receive Date: 20201207
  Receipt Date: 20201207
  Transmission Date: 20210114
  Serious: No
  Sender: FDA-Public Use
  Company Number: US-GLAXOSMITHKLINE-US2020236585

PATIENT
  Age: 79 Year
  Sex: Female

DRUGS (1)
  1. NUCALA [Suspect]
     Active Substance: MEPOLIZUMAB
     Indication: PRODUCT USED FOR UNKNOWN INDICATION
     Dosage: UNK
     Dates: start: 20201117

REACTIONS (4)
  - Cough [Unknown]
  - Fatigue [Unknown]
  - Headache [Recovered/Resolved]
  - Corneal abrasion [Not Recovered/Not Resolved]

NARRATIVE: CASE EVENT DATE: 20201117
